FAERS Safety Report 7563619-5 (Version None)
Quarter: 2011Q2

REPORT INFORMATION
  Report Type: 
  Country: None (occurrence: None)
  Receive Date: 20110622
  Receipt Date: 20110613
  Transmission Date: 20111010
  Serious: Yes (Hospitalization)
  Sender: FDA-Public Use
  Company Number: US-BRISTOL-MYERS SQUIBB COMPANY-15038375

PATIENT
  Age: 64 Year
  Sex: Male

DRUGS (11)
  1. PLACEBO [Suspect]
     Indication: THROMBOSIS PROPHYLAXIS
     Dosage: WITH APIXABAN AND WARFARIN SODIUM INTERRUPTED 04-MAR-2010 TO 06-MAR-2010
     Route: 048
     Dates: start: 20081203
  2. LISINOPRIL [Concomitant]
     Route: 048
  3. DIGOXIN [Concomitant]
     Route: 048
  4. METOPROLOL TARTRATE [Concomitant]
     Route: 048
  5. WARFARIN SODIUM [Suspect]
     Indication: THROMBOSIS PROPHYLAXIS
     Dosage: ALSO TAKEN AS CONMED INTERRUPTED 04-MAR-2010 TO 06-MAR-2010
     Route: 048
     Dates: start: 20081203
  6. POTASSIUM [Concomitant]
     Route: 048
  7. PRAVASTATIN SODIUM [Concomitant]
     Route: 048
  8. LASIX [Concomitant]
     Route: 048
  9. NORVASC [Concomitant]
     Route: 048
  10. PRILOSEC [Concomitant]
     Route: 048
  11. ASPIRIN [Concomitant]
     Route: 048

REACTIONS (2)
  - ARTERIAL THROMBOSIS LIMB [None]
  - FEMORAL ARTERY OCCLUSION [None]
